FAERS Safety Report 9421401 (Version 1)
Quarter: 2013Q3

REPORT INFORMATION
  Report Type: Spontaneous
  Country: US (occurrence: US)
  Receive Date: 20130725
  Receipt Date: 20130725
  Transmission Date: 20140515
  Serious: Yes (Other)
  Sender: FDA-Public Use
  Company Number: PHHY2013US078538

PATIENT
  Age: 84 Year
  Sex: Female

DRUGS (1)
  1. ACETYLSALICYLIC ACID [Suspect]
     Indication: HEADACHE
     Route: 048
     Dates: start: 2013

REACTIONS (1)
  - Ulcer haemorrhage [Unknown]
